FAERS Safety Report 6757067-5 (Version None)
Quarter: 2010Q2

REPORT INFORMATION
  Report Type: 
  Country: None (occurrence: None)
  Receive Date: 20100604
  Receipt Date: 20100524
  Transmission Date: 20101027
  Serious: Yes (Other)
  Sender: FDA-Public Use
  Company Number: US-ELI_LILLY_AND_COMPANY-US201001004460

PATIENT
  Sex: Female

DRUGS (4)
  1. FORTEO [Suspect]
     Indication: OSTEOPOROSIS
     Dosage: 20 UG, DAILY (1/D)
     Dates: start: 20090603
  2. FORTEO [Suspect]
     Dosage: 20 UG, DAILY (1/D)
  3. CITALOPRAM [Concomitant]
  4. MULTI-VITAMINS [Concomitant]

REACTIONS (4)
  - FALL [None]
  - PAIN [None]
  - PELVIC FRACTURE [None]
  - UTERINE DISORDER [None]
